FAERS Safety Report 5093240-2 (Version None)
Quarter: 2006Q3

REPORT INFORMATION
  Report Type: 
  Country: None (occurrence: None)
  Receive Date: 20060830
  Receipt Date: 20060825
  Transmission Date: 20061208
  Serious: Yes (Hospitalization)
  Sender: FDA-Public Use
  Company Number: US-BOEHRINGER INGELHEIM PHARMACEUTICALS, INC.-2006-BP-09964BP

PATIENT
  Age: 67 Year
  Sex: Female

DRUGS (4)
  1. MOBIC [Suspect]
     Route: 048
     Dates: start: 20060101, end: 20060101
  2. REQUIP [Concomitant]
  3. AMANTADINE HCL [Concomitant]
  4. SINEMET [Concomitant]

REACTIONS (4)
  - ABNORMAL BEHAVIOUR [None]
  - BLOOD CREATININE INCREASED [None]
  - CONFUSIONAL STATE [None]
  - PERIPHERAL ISCHAEMIA [None]
